FAERS Safety Report 21709757 (Version 1)
Quarter: 2022Q4

REPORT INFORMATION
  Report Type: Spontaneous
  Country: US (occurrence: US)
  Receive Date: 20221210
  Receipt Date: 20221210
  Transmission Date: 20230113
  Serious: No
  Sender: FDA-Public Use
  Company Number: US-VIIV HEALTHCARE LIMITED-US2022180063

PATIENT
  Sex: Female

DRUGS (7)
  1. CABENUVA [Suspect]
     Active Substance: CABOTEGRAVIR\RILPIVIRINE
     Indication: HIV infection
     Dosage: UNK,RIGHT DORSAL GLUTEAL, LEFT DORSAL GLUTEAL
  2. CABENUVA [Suspect]
     Active Substance: CABOTEGRAVIR\RILPIVIRINE
  3. CABENUVA [Suspect]
     Active Substance: CABOTEGRAVIR\RILPIVIRINE
  4. REYATAZ [Concomitant]
     Active Substance: ATAZANAVIR SULFATE
     Indication: Product used for unknown indication
     Dosage: 200 MG
  5. LAMIVUDINE AND ZIDOVUDINE [Concomitant]
     Active Substance: LAMIVUDINE\ZIDOVUDINE
     Indication: Product used for unknown indication
     Dosage: UNK,150-300 MG
  6. XYZAL [Concomitant]
     Active Substance: LEVOCETIRIZINE DIHYDROCHLORIDE
     Indication: Product used for unknown indication
     Dosage: 5 MG
  7. ATAZANAVIR SULFATE [Concomitant]
     Active Substance: ATAZANAVIR SULFATE
     Indication: Product used for unknown indication
     Dosage: 200 MG

REACTIONS (1)
  - Injection site mass [Not Recovered/Not Resolved]
